FAERS Safety Report 15615433 (Version 2)
Quarter: 2018Q4

REPORT INFORMATION
  Report Type: Spontaneous
  Country: US (occurrence: US)
  Receive Date: 20181114
  Receipt Date: 20181227
  Transmission Date: 20190205
  Serious: Yes (Hospitalization)
  Sender: FDA-Public Use
  Company Number: US-ASTRAZENECA-2018SF47041

PATIENT
  Age: 76 Year
  Sex: Male
  Weight: 62.6 kg

DRUGS (4)
  1. SYMBICORT [Suspect]
     Active Substance: BUDESONIDE\FORMOTEROL FUMARATE DIHYDRATE
     Indication: ASTHMA
     Dosage: 80/ 4.5 MCG 2 INHALATIONS TWICE A DAY
     Route: 055
     Dates: start: 2013
  2. PULMICORT FLEXHALER [Suspect]
     Active Substance: BUDESONIDE
     Indication: ASTHMA
     Route: 055
  3. PROAIR HFA [Concomitant]
     Active Substance: ALBUTEROL SULFATE
     Indication: INHALATION THERAPY
     Dosage: ONE PUFF AS NEEDED EVERY 6 HOURS AS REQUIRED
     Route: 055
  4. ATORVASTATIN [Concomitant]
     Active Substance: ATORVASTATIN
     Indication: BLOOD CHOLESTEROL INCREASED
     Dates: start: 2000

REACTIONS (7)
  - Circumstance or information capable of leading to medication error [Unknown]
  - Coronary artery disease [Unknown]
  - Device failure [Unknown]
  - Blood cholesterol increased [Unknown]
  - Angina pectoris [Unknown]
  - Intentional product misuse [Unknown]
  - Intentional device misuse [Unknown]

NARRATIVE: CASE EVENT DATE: 20181106
